FAERS Safety Report 9681133 (Version 4)
Quarter: 2014Q1

REPORT INFORMATION
  Report Type: Spontaneous
  Country: DE (occurrence: DE)
  Receive Date: 20131111
  Receipt Date: 20140310
  Transmission Date: 20141002
  Serious: Yes (Hospitalization)
  Sender: FDA-Public Use
  Company Number: DE-ELI_LILLY_AND_COMPANY-DE201310009270

PATIENT
  Age: 28 Year
  Sex: Female

DRUGS (2)
  1. STRATTERA [Suspect]
     Indication: ATTENTION DEFICIT/HYPERACTIVITY DISORDER
     Dosage: 40 MG, QD
     Route: 048
     Dates: start: 201307, end: 20130830
  2. PROTHAZIN [Concomitant]
     Indication: SLEEP DISORDER
     Dosage: 50 MG, UNKNOWN
     Route: 065
     Dates: end: 20130830

REACTIONS (5)
  - Post-traumatic stress disorder [Recovered/Resolved]
  - Bowel movement irregularity [Recovered/Resolved]
  - Peripheral coldness [Recovered/Resolved]
  - Paraesthesia [Recovered/Resolved]
  - Pruritus [Recovered/Resolved]
